FAERS Safety Report 14214406 (Version 2)
Quarter: 2017Q4

REPORT INFORMATION
  Report Type: Spontaneous
  Country: US (occurrence: US)
  Receive Date: 20171122
  Receipt Date: 20171227
  Transmission Date: 20180321
  Serious: No
  Sender: FDA-Public Use
  Company Number: US-PFIZER INC-2017498989

PATIENT
  Age: 55 Year
  Sex: Female
  Weight: 57.61 kg

DRUGS (14)
  1. LETROZOLE. [Concomitant]
     Active Substance: LETROZOLE
     Indication: BREAST CANCER METASTATIC
     Dosage: 2.5 MG (ONE TABLET), ONCE A DAY
     Route: 048
     Dates: start: 201701
  2. PROAIR HFA [Concomitant]
     Active Substance: ALBUTEROL SULFATE
     Indication: ASTHMA
     Dosage: 2 DF, AS NEEDED (2 PUFFS, RESCUE INHALER)
     Route: 048
  3. IBRANCE [Suspect]
     Active Substance: PALBOCICLIB
     Dosage: 125 MG, CYCLIC (DAILY FOR 21 DAYS ON AND 7 DAYS OFF)
     Route: 048
     Dates: start: 201701
  4. LEVOTHYROXINE. [Concomitant]
     Active Substance: LEVOTHYROXINE
     Indication: THYROID DISORDER
     Dosage: 75 UG (1 TABLET), DAILY
     Route: 048
  5. LORAZEPAM. [Concomitant]
     Active Substance: LORAZEPAM
     Indication: ANXIETY
     Dosage: 0.5 MG, 2X/DAY
     Dates: start: 201510
  6. DULERA [Concomitant]
     Active Substance: FORMOTEROL FUMARATE DIHYDRATE\MOMETASONE FUROATE
     Indication: ASTHMA
     Dosage: ONE PUFF ONCE A DAY
  7. LORAZEPAM. [Concomitant]
     Active Substance: LORAZEPAM
     Indication: NAUSEA
     Dosage: 0.5 MG (ONE TABLET)  TWICE DAILY AS NEEDED
     Route: 048
     Dates: start: 201510
  8. MARINOL (ALLOPURINOL) [Concomitant]
     Active Substance: ALLOPURINOL
     Indication: DECREASED APPETITE
     Dosage: 5 MG, 1X/DAY
     Route: 048
  9. DRONABINOL. [Concomitant]
     Active Substance: DRONABINOL
     Indication: NAUSEA
     Dosage: 2.5 MG, 2X/DAY
     Route: 048
     Dates: start: 2017
  10. IBRANCE [Suspect]
     Active Substance: PALBOCICLIB
     Indication: BREAST CANCER METASTATIC
     Dosage: 125 MG, ONCE A DAY FOR 21 DAYS
     Route: 048
  11. DRONABINOL. [Concomitant]
     Active Substance: DRONABINOL
     Indication: WEIGHT ABNORMAL
  12. LETROZOLE. [Concomitant]
     Active Substance: LETROZOLE
     Indication: HORMONE LEVEL ABNORMAL
     Dosage: 0.5 MG, UNK
     Route: 048
     Dates: start: 2016
  13. BIOTIN [Concomitant]
     Active Substance: BIOTIN
     Indication: ALOPECIA
     Dosage: 500 UG, 1X/DAY
     Route: 048
  14. MARINOL (ALLOPURINOL) [Concomitant]
     Active Substance: ALLOPURINOL
     Indication: NAUSEA

REACTIONS (7)
  - Red blood cell count decreased [Unknown]
  - Onychoclasis [Not Recovered/Not Resolved]
  - Memory impairment [Not Recovered/Not Resolved]
  - Headache [Not Recovered/Not Resolved]
  - Protein total decreased [Unknown]
  - Platelet count decreased [Unknown]
  - White blood cell count decreased [Unknown]

NARRATIVE: CASE EVENT DATE: 2016
